FAERS Safety Report 4533482-5 (Version None)
Quarter: 2004Q4

REPORT INFORMATION
  Report Type: 
  Country: None (occurrence: None)
  Receive Date: 20041210
  Receipt Date: 20040921
  Transmission Date: 20050328
  Serious: Yes (Hospitalization)
  Sender: FDA-Public Use
  Company Number: F03200400095

PATIENT
  Age: 77 Year
  Sex: Female

DRUGS (9)
  1. ELOXATIN [Suspect]
     Indication: COLORECTAL CANCER METASTATIC
     Dosage: 133 MG OTHER - INTRAVENOUS NOS
     Route: 042
     Dates: start: 20040824, end: 20040824
  2. CETUXIMAB - SOLUTION [Suspect]
     Indication: COLORECTAL CANCER METASTATIC
     Dosage: INTRAVENOUS NOS
     Route: 042
     Dates: start: 20040824, end: 20040824
  3. XELODA [Suspect]
     Indication: COLORECTAL CANCER METASTATIC
     Dosage: ORAL
     Route: 048
  4. VERAPAMIL [Concomitant]
  5. METOPROLOL [Concomitant]
  6. ETACRYNIC ACID [Concomitant]
  7. WARFARIN SODIUM [Concomitant]
  8. POTASSIUM CHLORIDE [Concomitant]
  9. METRONIDAZOLE [Concomitant]

REACTIONS (4)
  - CLOSTRIDIAL INFECTION [None]
  - DIARRHOEA [None]
  - NAUSEA [None]
  - VOMITING [None]
